FAERS Safety Report 10549268 (Version 1)
Quarter: 2014Q4

REPORT INFORMATION
  Report Type: Spontaneous
  Country: US (occurrence: US)
  Receive Date: 20141028
  Receipt Date: 20141028
  Transmission Date: 20150529
  Serious: Yes (Other)
  Sender: FDA-Public Use
  Company Number: US-GLAXOSMITHKLINE-US2014GSK013117

PATIENT
  Age: 68 Year
  Sex: Male

DRUGS (1)
  1. TANZEUM [Suspect]
     Active Substance: ALBIGLUTIDE
     Indication: TYPE 2 DIABETES MELLITUS
     Dosage: 30 MG, SINGLE
     Route: 058
     Dates: start: 2014, end: 2014

REACTIONS (3)
  - Malaise [Unknown]
  - Pneumonia [Unknown]
  - Chills [Unknown]

NARRATIVE: CASE EVENT DATE: 2014
